FAERS Safety Report 9730429 (Version 2)
Quarter: 2013Q4

REPORT INFORMATION
  Report Type: Spontaneous
  Country: SK (occurrence: SK)
  Receive Date: 20131204
  Receipt Date: 20131204
  Transmission Date: 20140711
  Serious: Yes (Other)
  Sender: FDA-Public Use
  Company Number: SK-ROCHE-1307262

PATIENT
  Sex: 0

DRUGS (7)
  1. BEVACIZUMAB [Suspect]
     Indication: LUNG ADENOCARCINOMA
     Route: 065
     Dates: start: 20121024, end: 20130815
  2. BEVACIZUMAB [Suspect]
     Route: 065
  3. HERCEPTIN [Concomitant]
     Dosage: FIRST LINE DOSE
     Route: 065
     Dates: start: 20120703, end: 20121120
  4. CARBOPLATIN [Concomitant]
     Dosage: FIRST LINE DOSE
     Route: 065
     Dates: start: 20120703, end: 20121120
  5. TAXOTERE [Concomitant]
     Dosage: FIRST LINE DOSE
     Route: 065
     Dates: start: 20120703, end: 20121120
  6. GEMCITABINE [Concomitant]
     Route: 065
  7. CISPLATINA [Concomitant]
     Route: 065
     Dates: start: 20121024, end: 20130815

REACTIONS (2)
  - Disease progression [Unknown]
  - Accelerated hypertension [Recovered/Resolved]
